FAERS Safety Report 6553722-0 (Version None)
Quarter: 2010Q1

REPORT INFORMATION
  Report Type: 
  Country: None (occurrence: None)
  Receive Date: 20100127
  Receipt Date: 20100114
  Transmission Date: 20100710
  Serious: Yes (Hospitalization)
  Sender: FDA-Public Use
  Company Number: ES-CELGENEUS-144-C5013-09121646

PATIENT
  Sex: Male
  Weight: 78 kg

DRUGS (10)
  1. CC-5013 [Suspect]
     Indication: MULTIPLE MYELOMA
     Route: 048
     Dates: start: 20091202
  2. CC-5013 [Suspect]
     Route: 048
     Dates: start: 20090610
  3. DEXAMETHASONE [Suspect]
     Indication: MULTIPLE MYELOMA
     Route: 065
     Dates: start: 20091202
  4. DEXAMETHASONE [Suspect]
     Route: 065
     Dates: start: 20090610
  5. VALSARTAN [Concomitant]
     Indication: HYPERTENSION
     Route: 048
     Dates: start: 20091001, end: 20091219
  6. ENOXAPARIN SODIUM [Concomitant]
     Indication: THROMBOSIS PROPHYLAXIS
     Route: 058
     Dates: start: 20090610
  7. OMEPRAZOLE [Concomitant]
     Indication: PROPHYLAXIS
     Route: 048
     Dates: start: 20090520
  8. SULPHAMETHOXAZOLE [Concomitant]
     Route: 048
     Dates: start: 20090610
  9. TRIMETHOPRIM [Concomitant]
     Route: 048
     Dates: start: 20090610
  10. HYDROCHLOROTHIAZIDE [Concomitant]
     Indication: HYPERTENSION
     Route: 048
     Dates: start: 20091001, end: 20091219

REACTIONS (1)
  - RESPIRATORY SYNCYTIAL VIRUS INFECTION [None]
